FAERS Safety Report 12065287 (Version 1)
Quarter: 2016Q1

REPORT INFORMATION
  Report Type: Spontaneous
  Country: US (occurrence: US)
  Receive Date: 20160210
  Receipt Date: 20160210
  Transmission Date: 20160526
  Serious: No
  Sender: FDA-Public Use
  Company Number: US-ALLERGAN-1509283US

PATIENT
  Sex: Female

DRUGS (6)
  1. BOTOX COSMETIC [Suspect]
     Active Substance: ONABOTULINUMTOXINA
     Dosage: 16 UNITS GLABELLA, SINGLE
     Route: 030
     Dates: start: 20150114, end: 20150114
  2. BOTOX COSMETIC [Suspect]
     Active Substance: ONABOTULINUMTOXINA
     Dosage: 7 UNITS FOREHEAD, SINGLE
     Route: 030
     Dates: start: 20150114, end: 20150114
  3. ZYRTEC [Concomitant]
     Active Substance: CETIRIZINE HYDROCHLORIDE
     Indication: SEASONAL ALLERGY
     Route: 048
  4. BOTOX COSMETIC [Suspect]
     Active Substance: ONABOTULINUMTOXINA
     Indication: SKIN WRINKLING
     Dosage: 5 UNITS RIGHT SIDE, SINGLE
     Route: 030
     Dates: start: 20150114, end: 20150114
  5. ACNE MEDICATION 10 [Concomitant]
     Active Substance: BENZOYL PEROXIDE
     Indication: ACNE
  6. BOTOX COSMETIC [Suspect]
     Active Substance: ONABOTULINUMTOXINA
     Dosage: 5 UNITS LEFT SIDE, SINGLE
     Route: 030
     Dates: start: 20150114, end: 20150114

REACTIONS (2)
  - Brow ptosis [Recovered/Resolved]
  - Facial paresis [Recovered/Resolved]

NARRATIVE: CASE EVENT DATE: 201502
